FAERS Safety Report 20977695 (Version 1)
Quarter: 2022Q2

REPORT INFORMATION
  Report Type: Spontaneous
  Country: PL (occurrence: PL)
  Receive Date: 20220618
  Receipt Date: 20220618
  Transmission Date: 20220721
  Serious: Yes (Other)
  Sender: FDA-Public Use
  Company Number: PL-002147023-NVSC2022PL132766

PATIENT
  Age: 67 Year
  Sex: Male

DRUGS (1)
  1. INTERFERON BETA-1B [Suspect]
     Active Substance: INTERFERON BETA-1B
     Indication: Relapsing-remitting multiple sclerosis
     Dosage: UNK, RECOMBINANT
     Route: 058

REACTIONS (3)
  - Multiple sclerosis relapse [None]
  - Relapsing-remitting multiple sclerosis [None]
  - Disease progression [None]

NARRATIVE: CASE EVENT DATE: 20130601
